FAERS Safety Report 11127887 (Version 1)
Quarter: 2015Q2

REPORT INFORMATION
  Report Type: Report from Study
  Country: US (occurrence: US)
  Receive Date: 20150521
  Receipt Date: 20150521
  Transmission Date: 20150821
  Serious: Yes (Other)
  Sender: FDA-Public Use
  Company Number: US-SA-2015SA067277

PATIENT
  Age: 34 Year
  Sex: Female

DRUGS (2)
  1. PLEGRIDY [Concomitant]
     Active Substance: PEGINTERFERON BETA-1A
     Dosage: 2 INJECTIONS
  2. AUBAGIO [Suspect]
     Active Substance: TERIFLUNOMIDE
     Indication: MULTIPLE SCLEROSIS
     Route: 048
     Dates: start: 20150216

REACTIONS (7)
  - Weight decreased [Unknown]
  - Feeding disorder [Unknown]
  - Alopecia [Unknown]
  - Syncope [Unknown]
  - Vomiting [Unknown]
  - Memory impairment [Unknown]
  - Dehydration [Unknown]

NARRATIVE: CASE EVENT DATE: 2015
